FAERS Safety Report 6671598-8 (Version None)
Quarter: 2010Q2

REPORT INFORMATION
  Report Type: 
  Country: None (occurrence: None)
  Receive Date: 20100407
  Receipt Date: 20100329
  Transmission Date: 20101027
  Serious: Yes (Death)
  Sender: FDA-Public Use
  Company Number: BR-PFIZER INC-2010039961

PATIENT
  Age: 70 Year
  Sex: Female

DRUGS (3)
  1. LIPITOR [Suspect]
     Dosage: 80 MG, 1X/DAY
     Route: 048
     Dates: start: 20060317
  2. OMEPRAZOLE [Concomitant]
     Dosage: UNK
     Dates: start: 20060323, end: 20100123
  3. NOVOLIN [Concomitant]
     Dosage: UNK
     Dates: start: 20040329, end: 20100123

REACTIONS (1)
  - DEATH [None]
